FAERS Safety Report 8006723-X (Version None)
Quarter: 2011Q4

REPORT INFORMATION
  Report Type: 
  Country: None (occurrence: None)
  Receive Date: 20111227
  Receipt Date: 20111216
  Transmission Date: 20120403
  Serious: Yes (Other)
  Sender: FDA-Public Use
  Company Number: CA-JNJFOC-20111208599

PATIENT
  Sex: Female
  Weight: 58.6 kg

DRUGS (7)
  1. ENTOCORT EC [Concomitant]
     Route: 065
  2. CODEINE [Concomitant]
     Route: 065
  3. VITAMIN D [Concomitant]
     Route: 065
  4. MULTI-VITAMINS [Concomitant]
     Route: 065
  5. REMICADE [Suspect]
     Indication: CROHN'S DISEASE
     Route: 042
     Dates: start: 20081217
  6. PENTASA [Concomitant]
     Route: 065
  7. IMURAN [Concomitant]
     Route: 065

REACTIONS (1)
  - NEPHROLITHIASIS [None]
